FAERS Safety Report 5584218-0 (Version None)
Quarter: 2008Q1

REPORT INFORMATION
  Report Type: 
  Country: None (occurrence: None)
  Receive Date: 20080108
  Receipt Date: 20080102
  Transmission Date: 20080703
  Serious: Yes (Other)
  Sender: FDA-Public Use
  Company Number: A0695286A

PATIENT
  Age: 53 Year
  Sex: Female
  Weight: 79.5 kg

DRUGS (7)
  1. ALLI [Suspect]
     Route: 048
  2. LEVOXYL [Concomitant]
  3. ALDACTONE [Concomitant]
  4. CALCIUM SUPPLEMENT [Concomitant]
  5. CARAFATE [Concomitant]
  6. PROZAC [Concomitant]
  7. K-DUR 10 [Concomitant]
     Dosage: 20MCG TWICE PER DAY

REACTIONS (8)
  - BLISTER [None]
  - BLOOD CHOLESTEROL INCREASED [None]
  - BLOOD THYROID STIMULATING HORMONE INCREASED [None]
  - BLOOD TRIGLYCERIDES INCREASED [None]
  - BUNION [None]
  - CHEST PAIN [None]
  - LOW DENSITY LIPOPROTEIN INCREASED [None]
  - PAIN IN EXTREMITY [None]
